FAERS Safety Report 9882629 (Version 1)
Quarter: 2014Q1

REPORT INFORMATION
  Report Type: Report from Study
  Country: US (occurrence: US)
  Receive Date: 20140207
  Receipt Date: 20140207
  Transmission Date: 20141002
  Serious: Yes (Other)
  Sender: FDA-Public Use
  Company Number: US-US-EMD SERONO, INC.-7267415

PATIENT
  Sex: Male
  Weight: 73 kg

DRUGS (1)
  1. REBIF [Suspect]
     Indication: MULTIPLE SCLEROSIS
     Route: 058
     Dates: start: 20080421, end: 2014

REACTIONS (2)
  - Nephrolithiasis [Recovered/Resolved]
  - Liver function test abnormal [Not Recovered/Not Resolved]
